FAERS Safety Report 11514777 (Version 2)
Quarter: 2017Q3

REPORT INFORMATION
  Report Type: Spontaneous
  Country: US (occurrence: US)
  Receive Date: 20150916
  Receipt Date: 20170928
  Transmission Date: 20171127
  Serious: No
  Sender: FDA-Public Use
  Company Number: US-ASTRAZENECA-2015SE85329

PATIENT
  Sex: Female

DRUGS (1)
  1. TUDORZA PRESSAIR [Suspect]
     Active Substance: ACLIDINIUM BROMIDE
     Dosage: 400 MCG ONE PUFF TWO TIMES A DAY
     Route: 055

REACTIONS (4)
  - Drug dose omission [Unknown]
  - Neck pain [Unknown]
  - Product quality issue [Unknown]
  - Exostosis [Unknown]
